FAERS Safety Report 22996126 (Version 2)
Quarter: 2023Q4

REPORT INFORMATION
  Report Type: Spontaneous
  Country: US (occurrence: US)
  Receive Date: 20230927
  Receipt Date: 20231006
  Transmission Date: 20240110
  Serious: Yes (Other)
  Sender: FDA-Public Use
  Company Number: US-SEAGEN-2023SGN10609

PATIENT
  Sex: Female

DRUGS (5)
  1. TIVDAK [Suspect]
     Active Substance: TISOTUMAB VEDOTIN-TFTV
     Indication: Cervix carcinoma
     Dosage: UNK
     Route: 065
     Dates: start: 202301
  2. XIIDRA [Concomitant]
     Active Substance: LIFITEGRAST
     Indication: Antiinflammatory therapy
     Dosage: UNK
     Route: 065
  3. ARTIFICIAL TEAR [HYPROMELLOSE] [Concomitant]
     Indication: Eye lubrication therapy
     Dosage: UNK
     Route: 065
  4. MINERALS\VITAMINS [Concomitant]
     Active Substance: MINERALS\VITAMINS
     Dosage: UNK
     Route: 065
  5. VENLAFAXINE [Concomitant]
     Active Substance: VENLAFAXINE HYDROCHLORIDE
     Dosage: UNK
     Route: 065

REACTIONS (4)
  - Symblepharon [Recovering/Resolving]
  - Cataract [Not Recovered/Not Resolved]
  - Ulcerative keratitis [Unknown]
  - Mucosal disorder [Unknown]
